FAERS Safety Report 8791805 (Version 1)
Quarter: 2012Q4

REPORT INFORMATION
  Report Type: 
  Country: US (occurrence: US)
  Receive Date: 20120918
  Receipt Date: 20120918
  Transmission Date: 20130627
  Serious: Yes (Other)
  Sender: FDA-Public Use
  Company Number: US-SANOFI-AVENTIS-2012SA066239

PATIENT
  Sex: Female

DRUGS (2)
  1. LANTUS [Suspect]
     Indication: TYPE 2 DIABETES MELLITUS
     Dosage: Dose:50 unit(s)
     Route: 058
     Dates: start: 2007
  2. SOLOSTAR [Suspect]
     Indication: TYPE 2 DIABETES MELLITUS
     Dates: start: 2007

REACTIONS (3)
  - West Nile viral infection [Recovered/Resolved with Sequelae]
  - Nervous system disorder [Recovered/Resolved with Sequelae]
  - Oedema peripheral [Recovered/Resolved with Sequelae]
